FAERS Safety Report 9237936 (Version 1)
Quarter: 2013Q1

REPORT INFORMATION
  Report Type: Spontaneous
  Country: US (occurrence: None)
  Receive Date: 20121106
  Receipt Date: 20121106
  Transmission Date: 20140127
  Serious: No
  Sender: FDA-Public Use
  Company Number: 1000038608

PATIENT
  Age: 65 Year
  Sex: Male

DRUGS (8)
  1. DALIRESP [Suspect]
     Indication: CHRONIC OBSTRUCTIVE PULMONARY DISEASE
     Route: 048
     Dates: start: 20120912, end: 20120915
  2. BUSPIRONE (BUSIPIRONE( (BUSPIRONE) [Concomitant]
  3. VICODIN (VICODIN) (VICODIN) [Concomitant]
  4. PAXIL (PAROXETINE HYDROCHLORIDE) (TABLETS) (PAROXETINE HYDROCHLORIDE) [Concomitant]
  5. NICOTINE PATCH (NICOTINE PATCH (NICOTINE PATCH) [Concomitant]
  6. ADVAIR (SERETIDE) (SERETIDE) [Concomitant]
  7. SPIRIVA (TIOTROPIUM BROMIDE) (TIOTROPIUM BROMIDE) [Concomitant]
  8. ALBUTEROL [Suspect]

REACTIONS (2)
  - Decreased appetite [None]
  - Feeling jittery [None]
